FAERS Safety Report 13381826 (Version 1)
Quarter: 2017Q1

REPORT INFORMATION
  Report Type: Spontaneous
  Country: US (occurrence: US)
  Receive Date: 20170329
  Receipt Date: 20170329
  Transmission Date: 20170429
  Serious: Yes (Hospitalization, Other)
  Sender: FDA-Public Use
  Company Number: None

PATIENT
  Age: 73 Year
  Sex: Female
  Weight: 67.5 kg

DRUGS (10)
  1. VITAMIN B12 [Concomitant]
     Active Substance: CYANOCOBALAMIN
  2. VITAMIN C [Concomitant]
     Active Substance: ASCORBIC ACID
  3. PROGESTERONE. [Concomitant]
     Active Substance: PROGESTERONE
  4. DIGESTIVE ENZYMES [Concomitant]
     Active Substance: UNSPECIFIED INGREDIENT
  5. MIN-REX [Concomitant]
  6. DIOVAN [Concomitant]
     Active Substance: VALSARTAN
  7. CIPRO [Suspect]
     Active Substance: CIPROFLOXACIN HYDROCHLORIDE
     Indication: CATARACT OPERATION
     Route: 047
  8. ARMOUR THYROID [Concomitant]
     Active Substance: THYROID, PORCINE
  9. NEXIUM [Concomitant]
     Active Substance: ESOMEPRAZOLE MAGNESIUM
  10. ESTROGEN [Concomitant]
     Active Substance: ESTROGENS

REACTIONS (1)
  - Tendon rupture [None]

NARRATIVE: CASE EVENT DATE: 20160919
